FAERS Safety Report 11768394 (Version 2)
Quarter: 2016Q2

REPORT INFORMATION
  Report Type: Other
  Country: JP (occurrence: JP)
  Receive Date: 20151123
  Receipt Date: 20160525
  Transmission Date: 20160815
  Serious: Yes (Other)
  Sender: FDA-Public Use
  Company Number: JP-WARNER CHILCOTT 2015-002322

PATIENT
  Age: 84 Year
  Sex: Female

DRUGS (1)
  1. ACTONEL [Suspect]
     Active Substance: RISEDRONATE SODIUM
     Indication: OSTEOPOROSIS
     Route: 048

REACTIONS (11)
  - Osteosclerosis [None]
  - Pigmentation disorder [None]
  - Device breakage [None]
  - Fall [None]
  - Skin hypertrophy [None]
  - Ulna fracture [None]
  - Joint swelling [None]
  - Arthralgia [None]
  - Fracture displacement [None]
  - Condition aggravated [None]
  - Atypical fracture [None]
